FAERS Safety Report 21066715 (Version 1)
Quarter: 2022Q3

REPORT INFORMATION
  Report Type: Spontaneous
  Country: US (occurrence: US)
  Receive Date: 20220711
  Receipt Date: 20220711
  Transmission Date: 20221027
  Serious: Yes (Hospitalization, Other)
  Sender: FDA-Public Use
  Company Number: US-NOVEN PHARMACEUTICALS, INC.-2022-NOV-US000627

PATIENT
  Age: 21 Year
  Sex: Female

DRUGS (1)
  1. ESTRADIOL [Suspect]
     Active Substance: ESTRADIOL
     Indication: Hormone replacement therapy
     Dosage: 0.1 MG/24 HOURS, WEEKLY
     Route: 062
     Dates: start: 2021

REACTIONS (1)
  - Idiopathic intracranial hypertension [Unknown]

NARRATIVE: CASE EVENT DATE: 20210101
